FAERS Safety Report 10023654 (Version 1)
Quarter: 2014Q1

REPORT INFORMATION
  Report Type: Spontaneous
  Country: US (occurrence: US)
  Receive Date: 20140320
  Receipt Date: 20140320
  Transmission Date: 20141002
  Serious: No
  Sender: FDA-Public Use
  Company Number: US-TEVA-468277USA

PATIENT
  Age: 58 Year
  Sex: Male
  Weight: 129.39 kg

DRUGS (8)
  1. ACTIQ [Suspect]
     Indication: BREAKTHROUGH PAIN
     Dates: start: 2012
  2. OXYCONTIN [Concomitant]
     Indication: NEUROPATHY PERIPHERAL
     Dosage: 320 MILLIGRAM DAILY;
     Route: 048
  3. OXYCODONE [Concomitant]
     Indication: NEUROPATHY PERIPHERAL
     Route: 048
  4. COREG [Concomitant]
     Indication: HYPERTENSION
     Dosage: 40 MILLIGRAM DAILY;
  5. HYDROCHLOROTHIAZIDE [Concomitant]
     Indication: HYPERTENSION
     Dosage: 25 MILLIGRAM DAILY;
     Route: 048
  6. CYMBALTA [Concomitant]
     Indication: NEUROPATHY PERIPHERAL
     Dosage: 60 MILLIGRAM DAILY;
     Route: 048
  7. SYNTHROID [Concomitant]
     Indication: HYPOTHYROIDISM
     Dosage: 100 MILLIGRAM DAILY;
     Route: 048
  8. AXON [Concomitant]
     Indication: BLOOD TESTOSTERONE DECREASED
     Dosage: 30 MILLIGRAM DAILY;
     Route: 061

REACTIONS (3)
  - Aphthous stomatitis [Not Recovered/Not Resolved]
  - Glossodynia [Not Recovered/Not Resolved]
  - Dysphagia [Not Recovered/Not Resolved]
